FAERS Safety Report 6680104-3 (Version None)
Quarter: 2010Q2

REPORT INFORMATION
  Report Type: 
  Country: None (occurrence: None)
  Receive Date: 20100413
  Receipt Date: 20100405
  Transmission Date: 20101027
  Serious: Yes (Hospitalization, Other)
  Sender: FDA-Public Use
  Company Number: US-WATSON-2010-03376

PATIENT

DRUGS (12)
  1. FENTANYL-75 [Suspect]
     Indication: SUICIDE ATTEMPT
     Dosage: UNK
     Route: 048
     Dates: start: 20100315, end: 20100315
  2. FENTANYL-75 [Suspect]
     Indication: INTENTIONAL OVERDOSE
     Dosage: UNK
     Route: 042
     Dates: start: 20100315, end: 20100315
  3. FENTANYL-25 [Suspect]
     Indication: SUICIDE ATTEMPT
     Dosage: UNK
     Route: 048
     Dates: start: 20100315, end: 20100315
  4. FENTANYL-25 [Suspect]
     Indication: INTENTIONAL OVERDOSE
     Dosage: UNK
     Route: 042
     Dates: start: 20100315, end: 20100315
  5. RITALIN [Suspect]
     Indication: SUICIDE ATTEMPT
     Dosage: UNK, EST. 0600
     Route: 048
     Dates: start: 20100315, end: 20100315
  6. RITALIN [Suspect]
     Indication: INTENTIONAL OVERDOSE
  7. ADDERALL 30 [Suspect]
     Indication: SUICIDE ATTEMPT
     Dosage: UNK, EST 0600
     Route: 048
     Dates: start: 20100315, end: 20100315
  8. ADDERALL 30 [Suspect]
     Indication: INTENTIONAL OVERDOSE
  9. DILANTIN [Suspect]
     Indication: SUICIDE ATTEMPT
     Dosage: UNK
     Route: 048
     Dates: start: 20100315, end: 20100315
  10. DILANTIN [Suspect]
     Indication: INTENTIONAL OVERDOSE
  11. PERCOCET [Suspect]
     Indication: SUICIDE ATTEMPT
     Dosage: UNK
     Route: 048
     Dates: start: 20100315, end: 20100315
  12. PERCOCET [Suspect]
     Indication: INTENTIONAL OVERDOSE

REACTIONS (8)
  - CONVULSION [None]
  - IMPRISONMENT [None]
  - INTENTIONAL DRUG MISUSE [None]
  - LOSS OF CONSCIOUSNESS [None]
  - MULTIPLE DRUG OVERDOSE INTENTIONAL [None]
  - POISONING [None]
  - RESPIRATORY DEPRESSION [None]
  - SUICIDE ATTEMPT [None]
